FAERS Safety Report 9530858 (Version 1)
Quarter: 2013Q2

REPORT INFORMATION
  Report Type: Spontaneous
  Country: ES (occurrence: None)
  Receive Date: 20130412
  Receipt Date: 20130412
  Transmission Date: 20140414
  Serious: Yes (Hospitalization)
  Sender: FDA-Public Use
  Company Number: 2013-00035

PATIENT
  Age: 31 Year
  Sex: Male

DRUGS (2)
  1. LEVETIRACETAM (UNKNOWN) (LEVETIRACETAM) [Suspect]
     Indication: GRAND MAL CONVULSION
     Dosage: 1 GM, 2 IN 1 D
     Route: 048
  2. DEXAMETHASONE [Concomitant]

REACTIONS (1)
  - Drug reaction with eosinophilia and systemic symptoms [None]
